FAERS Safety Report 9620046 (Version 1)
Quarter: 2013Q4

REPORT INFORMATION
  Report Type: Spontaneous
  Country: SA (occurrence: SA)
  Receive Date: 20131014
  Receipt Date: 20131014
  Transmission Date: 20140711
  Serious: Yes (Hospitalization, Other)
  Sender: FDA-Public Use
  Company Number: SA-VERTEX PHARMACEUTICALS INC-2013-010375

PATIENT
  Age: 64 Year
  Sex: Female

DRUGS (4)
  1. INCIVO [Suspect]
     Indication: HEPATITIS C
     Dosage: 750 MG, TID
     Route: 048
  2. RIBAVIRIN [Suspect]
     Indication: HEPATITIS C
     Dosage: 1200 MG, UNK
     Route: 065
  3. RIBAVIRIN [Suspect]
     Dosage: 600 MG, UNK
     Route: 065
  4. PEG INTERFERON [Suspect]
     Indication: HEPATITIS C
     Dosage: DOSAGE FORM: UNSPECIFIED
     Route: 065

REACTIONS (6)
  - White blood cell count decreased [Recovered/Resolved]
  - Anaemia [Recovered/Resolved]
  - Platelet count decreased [Recovered/Resolved]
  - Pyrexia [Unknown]
  - Pain [Unknown]
  - Proctalgia [Unknown]
